APPROVED DRUG PRODUCT: ESOMEPRAZOLE SODIUM
Active Ingredient: ESOMEPRAZOLE SODIUM
Strength: EQ 40MG BASE/VIAL
Dosage Form/Route: INJECTABLE;INTRAVENOUS
Application: A203349 | Product #002 | TE Code: AP
Applicant: GLAND PHARMA LTD
Approved: Apr 1, 2020 | RLD: No | RS: No | Type: RX